FAERS Safety Report 5656608-9 (Version None)
Quarter: 2008Q1

REPORT INFORMATION
  Report Type: 
  Country: None (occurrence: None)
  Receive Date: 20080219
  Receipt Date: 20071215
  Transmission Date: 20080703
  Serious: No
  Sender: FDA-Public Use
  Company Number: WAES 0712USA08261

PATIENT
  Age: 74 Year
  Sex: Male

DRUGS (3)
  1. JANUVIA [Suspect]
     Indication: TYPE 2 DIABETES MELLITUS
     Dosage: 100 MG/DAILY/PO
     Route: 048
     Dates: start: 20071001
  2. LYRICA [Concomitant]
  3. ASPIRIN [Concomitant]

REACTIONS (1)
  - DYSARTHRIA [None]
